FAERS Safety Report 21068980 (Version 1)
Quarter: 2022Q3

REPORT INFORMATION
  Report Type: Spontaneous
  Country: US (occurrence: None)
  Receive Date: 20220711
  Receipt Date: 20220711
  Transmission Date: 20221026
  Serious: Yes (Disabling)
  Sender: FDA-Public Use
  Company Number: None

PATIENT
  Age: 36 Year
  Sex: Female

DRUGS (1)
  1. CIPRODEX [Suspect]
     Active Substance: CIPROFLOXACIN HYDROCHLORIDE\DEXAMETHASONE
     Indication: Ear infection
     Route: 001
     Dates: start: 20191123, end: 20191130

REACTIONS (4)
  - Taste disorder [None]
  - Parosmia [None]
  - Oral discomfort [None]
  - Burning mouth syndrome [None]

NARRATIVE: CASE EVENT DATE: 20191130
